FAERS Safety Report 24788978 (Version 1)
Quarter: 2024Q4

REPORT INFORMATION
  Report Type: Report from Study
  Country: US (occurrence: US)
  Receive Date: 20241230
  Receipt Date: 20241230
  Transmission Date: 20250114
  Serious: Yes (Hospitalization)
  Sender: ALNYLAM PHARMACEUTICALS
  Company Number: US-ALNYLAM PHARMACEUTICALS, INC.-ALN-2024-007269

PATIENT

DRUGS (4)
  1. GIVLAARI [Suspect]
     Active Substance: GIVOSIRAN SODIUM
     Indication: Product used for unknown indication
     Dosage: 270.45 MILLIGRAM (189 MILLIGRAM PER MILLILITRE) MONTHLY
     Route: 058
     Dates: start: 20240702, end: 20240702
  2. HEMIN [Concomitant]
     Active Substance: HEMIN
     Indication: Product used for unknown indication
     Dosage: UNK
     Route: 065
     Dates: start: 20241219
  3. HEMIN [Concomitant]
     Active Substance: HEMIN
     Dosage: UNK
     Dates: start: 20241220
  4. HEMIN [Concomitant]
     Active Substance: HEMIN
     Dosage: UNK
     Dates: start: 20241221

REACTIONS (2)
  - Porphyria acute [Unknown]
  - Gastroenteritis viral [Unknown]

NARRATIVE: CASE EVENT DATE: 20241201
